FAERS Safety Report 6226578-3 (Version None)
Quarter: 2009Q2

REPORT INFORMATION
  Report Type: 
  Country: None (occurrence: None)
  Receive Date: 20090612
  Receipt Date: 20090519
  Transmission Date: 20091009
  Serious: No
  Sender: FDA-Public Use
  Company Number: US-ABBOTT-09P-163-0574521-00

PATIENT
  Sex: Male

DRUGS (1)
  1. HUMIRA [Suspect]
     Indication: SACROILIITIS
     Route: 058
     Dates: start: 20080601

REACTIONS (3)
  - AMNESIA [None]
  - INJECTION SITE IRRITATION [None]
  - INJECTION SITE PAIN [None]
